FAERS Safety Report 16695553 (Version 1)
Quarter: 2019Q3

REPORT INFORMATION
  Report Type: Spontaneous
  Country: IN (occurrence: IN)
  Receive Date: 20190813
  Receipt Date: 20190813
  Transmission Date: 20191004
  Serious: No
  Sender: FDA-Public Use
  Company Number: IN-LUPIN LIMITED-2018-05769

PATIENT
  Age: 41 Year
  Sex: Male

DRUGS (4)
  1. COMBUTOL TAB UNCOATED 800 MG [Suspect]
     Active Substance: ETHAMBUTOL HYDROCHLORIDE
     Dosage: 1 DF, QD
     Route: 048
  2. COMBUTOL TAB UNCOATED 800 MG [Suspect]
     Active Substance: ETHAMBUTOL HYDROCHLORIDE
     Indication: BONE TUBERCULOSIS
     Dosage: 1 DF, QD
     Route: 048
     Dates: start: 201711
  3. PYRINA                             /00105401/ [Concomitant]
     Indication: TUBERCULOSIS
     Dosage: 2 DF, BID (MORNING AND EVENING)
     Route: 065
  4. RCINEX [Concomitant]
     Active Substance: ISONIAZID\RIFAMPIN
     Indication: TUBERCULOSIS
     Dosage: 1 DF, QD
     Route: 065

REACTIONS (2)
  - Product taste abnormal [Unknown]
  - Abdominal pain upper [Recovered/Resolved]

NARRATIVE: CASE EVENT DATE: 20180806
